FAERS Safety Report 19406999 (Version 1)
Quarter: 2021Q2

REPORT INFORMATION
  Report Type: Spontaneous
  Country: US (occurrence: US)
  Receive Date: 20210611
  Receipt Date: 20210611
  Transmission Date: 20210717
  Serious: Yes (Other)
  Sender: FDA-Public Use
  Company Number: US-ALLERGAN-2122139US

PATIENT
  Sex: Female

DRUGS (2)
  1. ARMOUR THYROID [Suspect]
     Active Substance: THYROID, PORCINE
     Indication: HYPOTHYROIDISM
     Dosage: 60 MG, BID
     Dates: start: 20210510
  2. ARMOUR THYROID [Suspect]
     Active Substance: THYROID, PORCINE
     Indication: HYPOTHYROIDISM
     Dosage: 30 MG, QD
     Route: 065
     Dates: start: 20210510

REACTIONS (3)
  - Cardiac failure [Not Recovered/Not Resolved]
  - Therapeutic response decreased [Unknown]
  - Product dispensing error [Unknown]

NARRATIVE: CASE EVENT DATE: 202105
